FAERS Safety Report 7107376-5 (Version None)
Quarter: 2010Q4

REPORT INFORMATION
  Report Type: 
  Country: None (occurrence: None)
  Receive Date: 20101112
  Receipt Date: 20101112
  Transmission Date: 20110411
  Serious: Yes (Other)
  Sender: FDA-Public Use
  Company Number: None

PATIENT
  Sex: Female

DRUGS (1)
  1. VANCOMYCIN [Suspect]
     Dosage: 1250MG Q12HR IV
     Route: 042

REACTIONS (5)
  - BODY TEMPERATURE INCREASED [None]
  - CATHETER SITE PRURITUS [None]
  - CHILLS [None]
  - CONDITION AGGRAVATED [None]
  - TINNITUS [None]
